FAERS Safety Report 16816517 (Version 1)
Quarter: 2019Q3

REPORT INFORMATION
  Report Type: Spontaneous
  Country: NL (occurrence: NL)
  Receive Date: 20190917
  Receipt Date: 20190917
  Transmission Date: 20191005
  Serious: Yes (Hospitalization)
  Sender: FDA-Public Use
  Company Number: NL-TEVA-2019-NL-1107091

PATIENT
  Age: 82 Year
  Sex: Male
  Weight: 85 kg

DRUGS (8)
  1. IRBESARTAN. [Suspect]
     Active Substance: IRBESARTAN
     Indication: HYPERTENSION
     Dates: start: 20190121, end: 20190813
  2. AMLODIPINE 10 MGR [Concomitant]
     Dosage: 10 MG
  3. SIMVASTATINE 20 MGR. [Concomitant]
  4. LANOXINE [Concomitant]
     Dosage: 2X 0,125 MCG
  5. FUROSEMIDE. [Concomitant]
     Active Substance: FUROSEMIDE
     Dosage: 1X 40 , 1X20 MGR,  1 DF
  6. SPIRONOLACTON 12,50 MGR [Concomitant]
  7. ACENOCOUMAROL V.A. [Concomitant]
  8. PANTOPRAZOL 40 MGR [Concomitant]

REACTIONS (6)
  - Renal impairment [Recovered/Resolved]
  - Malaise [Recovered/Resolved]
  - Vomiting [Recovered/Resolved]
  - Nausea [Recovered/Resolved]
  - Hyperkalaemia [Recovered/Resolved]
  - Hyponatraemia [Recovered/Resolved]

NARRATIVE: CASE EVENT DATE: 20190705
